FAERS Safety Report 12637117 (Version 1)
Quarter: 2016Q3

REPORT INFORMATION
  Report Type: Spontaneous
  Country: US (occurrence: US)
  Receive Date: 20160809
  Receipt Date: 20160809
  Transmission Date: 20161109
  Serious: No
  Sender: FDA-Public Use
  Company Number: US-BEH-2015052965

PATIENT
  Age: 64 Year
  Sex: Female
  Weight: 63.5 kg

DRUGS (28)
  1. PREDNISONE. [Concomitant]
     Active Substance: PREDNISONE
  2. CALCIUM D3 [Concomitant]
     Active Substance: CALCIUM\CHOLECALCIFEROL
  3. HEPARIN [Concomitant]
     Active Substance: HEPARIN SODIUM
  4. EPIPEN [Concomitant]
     Active Substance: EPINEPHRINE
  5. ESTRADIOL. [Concomitant]
     Active Substance: ESTRADIOL
  6. ASTELIN [Concomitant]
     Active Substance: AZELASTINE HYDROCHLORIDE
  7. MELATONIN [Concomitant]
     Active Substance: MELATONIN
  8. POTASSIUM CHLORIDE. [Concomitant]
     Active Substance: POTASSIUM CHLORIDE
  9. FLONASE [Concomitant]
     Active Substance: FLUTICASONE PROPIONATE
  10. VITAMIN D3 [Concomitant]
     Active Substance: CHOLECALCIFEROL
  11. DIPHENHYDRAMINE. [Concomitant]
     Active Substance: DIPHENHYDRAMINE
  12. AMBIEN [Concomitant]
     Active Substance: ZOLPIDEM TARTRATE
  13. PRIVIGEN [Suspect]
     Active Substance: HUMAN IMMUNOGLOBULIN G
     Dosage: 25 GM EVERY 4 WEEKS: 03-AUG-2015
     Route: 042
  14. ACETAMINOPHEN. [Concomitant]
     Active Substance: ACETAMINOPHEN
  15. APEXICON E [Concomitant]
     Active Substance: DIFLORASONE DIACETATE
  16. ARMOUR THYROID [Concomitant]
     Active Substance: THYROID, PORCINE
  17. OMEPRAZOLE. [Concomitant]
     Active Substance: OMEPRAZOLE
  18. PRIVIGEN [Suspect]
     Active Substance: HUMAN IMMUNOGLOBULIN G
     Indication: HYPOGAMMAGLOBULINAEMIA
     Dosage: 5 GM VIAL; 25 GM EVERY 4 WEEKS
     Route: 042
  19. DEXAMETHASONE. [Concomitant]
     Active Substance: DEXAMETHASONE
  20. LMX [Concomitant]
     Active Substance: LIDOCAINE
  21. LEXAPRO [Concomitant]
     Active Substance: ESCITALOPRAM OXALATE
  22. TESTOSTERONE. [Concomitant]
     Active Substance: TESTOSTERONE
  23. ALLEGRA [Concomitant]
     Active Substance: FEXOFENADINE HYDROCHLORIDE
  24. SODIUM CHLORIDE. [Concomitant]
     Active Substance: SODIUM CHLORIDE
     Indication: ANAPHYLACTIC REACTION
  25. KLONOPIN [Concomitant]
     Active Substance: CLONAZEPAM
  26. NORTRIPTYLINE [Concomitant]
     Active Substance: NORTRIPTYLINE
  27. PROGESTERONE. [Concomitant]
     Active Substance: PROGESTERONE
  28. SUDAFED [Concomitant]
     Active Substance: PSEUDOEPHEDRINE HYDROCHLORIDE
     Route: 048

REACTIONS (1)
  - Bronchitis [Unknown]

NARRATIVE: CASE EVENT DATE: 20150728
